FAERS Safety Report 9085827 (Version 1)
Quarter: 2013Q1

REPORT INFORMATION
  Report Type: Report from Study
  Country: US (occurrence: US)
  Receive Date: 20130131
  Receipt Date: 20130131
  Transmission Date: 20140127
  Serious: No
  Sender: FDA-Public Use
  Company Number: US-ABBOTT-12P-163-0999849-00

PATIENT
  Sex: Male

DRUGS (1)
  1. HUMIRA [Suspect]
     Indication: PSORIATIC ARTHROPATHY
     Route: 058
     Dates: start: 20120212, end: 20120601

REACTIONS (5)
  - Haemorrhoids [Unknown]
  - Drug ineffective [Unknown]
  - Blister [Unknown]
  - Nail discolouration [Unknown]
  - Onychoclasis [Unknown]
